FAERS Safety Report 11316550 (Version 1)
Quarter: 2015Q3

REPORT INFORMATION
  Report Type: Spontaneous
  Country: US (occurrence: US)
  Receive Date: 20150728
  Receipt Date: 20150728
  Transmission Date: 20151125
  Serious: Yes (Other)
  Sender: FDA-Public Use
  Company Number: US-SA-2015SA108737

PATIENT
  Age: 30 Year
  Sex: Female

DRUGS (1)
  1. CAPZASIN HP ARTHRITIS PAIN RELIEF [Suspect]
     Active Substance: CAPSAICIN
     Dosage: DERMAL

REACTIONS (6)
  - Blister [Not Recovered/Not Resolved]
  - Erythema [Not Recovered/Not Resolved]
  - Accidental exposure to product [Unknown]
  - Peripheral swelling [Not Recovered/Not Resolved]
  - Burns second degree [Not Recovered/Not Resolved]
  - Pain [Not Recovered/Not Resolved]

NARRATIVE: CASE EVENT DATE: 201507
